FAERS Safety Report 5302239-X (Version None)
Quarter: 2007Q2

REPORT INFORMATION
  Report Type: 
  Country: None (occurrence: None)
  Receive Date: 20070419
  Receipt Date: 20060626
  Transmission Date: 20071010
  Serious: No
  Sender: FDA-Public Use
  Company Number: US-GLAXOSMITHKLINE-A0610561A

PATIENT
  Sex: Male

DRUGS (3)
  1. ESKALITH [Suspect]
     Indication: BIPOLAR DISORDER
     Route: 048
     Dates: end: 20030101
  2. LITHIUM CITRATE [Suspect]
     Indication: BIPOLAR DISORDER
  3. LITHOBID [Suspect]
     Indication: BIPOLAR DISORDER

REACTIONS (1)
  - DIARRHOEA [None]
